FAERS Safety Report 6405827-2 (Version None)
Quarter: 2009Q4

REPORT INFORMATION
  Report Type: 
  Country: None (occurrence: None)
  Receive Date: 20091019
  Receipt Date: 20091007
  Transmission Date: 20100525
  Serious: Yes (Disabling)
  Sender: FDA-Public Use
  Company Number: US-MERCK-0906USA01734

PATIENT
  Age: 80 Year
  Sex: Female

DRUGS (4)
  1. FOSAMAX [Suspect]
     Indication: OSTEOPOROSIS
     Route: 048
     Dates: start: 20040801, end: 20070601
  2. DIOVAN [Concomitant]
     Route: 065
     Dates: start: 20031006, end: 20070620
  3. ACETAMINOPHEN AND PROPOXYPHENE NAPSYLATE [Concomitant]
     Route: 065
     Dates: start: 20030131, end: 20070104
  4. LEXAPRO [Concomitant]
     Route: 065
     Dates: start: 20031006, end: 20060414

REACTIONS (7)
  - DENTAL CARIES [None]
  - OEDEMA [None]
  - OSTEOARTHRITIS [None]
  - OSTEONECROSIS [None]
  - RESORPTION BONE INCREASED [None]
  - THYROID DISORDER [None]
  - TOOTHACHE [None]
